FAERS Safety Report 8075777-7 (Version None)
Quarter: 2012Q1

REPORT INFORMATION
  Report Type: 
  Country: None (occurrence: None)
  Receive Date: 20120127
  Receipt Date: 20120117
  Transmission Date: 20120608
  Serious: Yes (Hospitalization, Other)
  Sender: FDA-Public Use
  Company Number: US-AMGEN-USASP2011022442

PATIENT
  Age: 63 Year
  Sex: Male

DRUGS (2)
  1. ENBREL [Suspect]
     Indication: ARTHRITIS
  2. ENBREL [Suspect]
     Indication: PSORIASIS
     Dosage: 50 MG, QWK
     Dates: start: 20080418

REACTIONS (13)
  - SPINAL LAMINECTOMY [None]
  - JOINT SWELLING [None]
  - DYSPNOEA [None]
  - VISUAL IMPAIRMENT [None]
  - PAPILLOEDEMA [None]
  - COLITIS MICROSCOPIC [None]
  - PARAESTHESIA [None]
  - MUSCULOSKELETAL PAIN [None]
  - NEURALGIA [None]
  - SINUSITIS [None]
  - CONDITION AGGRAVATED [None]
  - EXOSTOSIS [None]
  - CSF PRESSURE INCREASED [None]
